FAERS Safety Report 12799708 (Version 2)
Quarter: 2016Q4

REPORT INFORMATION
  Report Type: Spontaneous
  Country: DE (occurrence: DE)
  Receive Date: 20160930
  Receipt Date: 20161019
  Transmission Date: 20170207
  Serious: Yes (Other)
  Sender: FDA-Public Use
  Company Number: DE-PFIZER INC-2016428730

PATIENT
  Age: 50 Year
  Sex: Female
  Weight: 58.5 kg

DRUGS (1)
  1. TAVOR EXPIDET [Suspect]
     Active Substance: LORAZEPAM
     Indication: PHOBIA OF FLYING
     Dosage: 1.25 MG, 2X/DAY (2.5 MG, 1/2 TABLET)
     Route: 060
     Dates: start: 20160819, end: 20160819

REACTIONS (2)
  - Anterograde amnesia [Recovered/Resolved]
  - Panic attack [Recovered/Resolved]

NARRATIVE: CASE EVENT DATE: 20160819
